FAERS Safety Report 9597512 (Version 1)
Quarter: 2013Q4

REPORT INFORMATION
  Report Type: Spontaneous
  Country: US (occurrence: US)
  Receive Date: 20131004
  Receipt Date: 20131004
  Transmission Date: 20140711
  Serious: No
  Sender: FDA-Public Use
  Company Number: US-AMGEN-USASP2013019674

PATIENT
  Age: 51 Year
  Sex: Male
  Weight: 120.18 kg

DRUGS (9)
  1. ENBREL [Suspect]
     Indication: PSORIATIC ARTHROPATHY
     Dosage: 50 MG, ONCE A WEEK
     Route: 058
  2. SIMPONI [Concomitant]
     Dosage: 50 MG, UNK
  3. VITAMIN D                          /00107901/ [Concomitant]
     Dosage: 1000 UNIT, UNK
  4. ASTAXANTHIN [Concomitant]
     Dosage: 4 MG, UNK
  5. MULTIPLE VITAMINS [Concomitant]
     Dosage: UNK
  6. VITAMIN E                          /00110501/ [Concomitant]
     Dosage: 400 UNIT, UNK
  7. METOPROLOL TARTRATE [Concomitant]
     Dosage: 50 MG, UNK
  8. METHOTREXATE [Concomitant]
     Dosage: 2.5 MG, UNK
  9. FOLIC ACID [Concomitant]

REACTIONS (1)
  - Drug ineffective [Unknown]
